FAERS Safety Report 7227317-X (Version None)
Quarter: 2011Q1

REPORT INFORMATION
  Report Type: 
  Country: None (occurrence: None)
  Receive Date: 20110105
  Receipt Date: 20101220
  Transmission Date: 20110831
  Serious: Yes (Hospitalization)
  Sender: FDA-Public Use
  Company Number: 024665

PATIENT
  Sex: Female

DRUGS (14)
  1. LOXOPROFEN SODIUM [Concomitant]
  2. FERROUS SODIUM CITRATE [Concomitant]
  3. ETHINYLESTRADIOL W/NORETHISTERONE ACETATE [Concomitant]
  4. CERTOLIZUMAB PEGOL (CERTOLIZUMAB PEGOL) [Suspect]
     Indication: RHEUMATOID ARTHRITIS
     Dosage: (200 MG 1X/2 WEEKS SUBCUTANEOUS)
     Route: 058
     Dates: start: 20090924
  5. ISONIAZID [Concomitant]
  6. BUCILLAMINE [Concomitant]
  7. PREDNISOLONE [Concomitant]
  8. ACONITE [Concomitant]
  9. LANSOPRAZOLE [Concomitant]
  10. CARBAZOCHROME SODIUM SULFONATE [Concomitant]
  11. CEVIMELINE [Concomitant]
  12. TRANEXAMIC ACID [Concomitant]
  13. GOSHAJINKIGAN [Concomitant]
  14. KETOPROFEN [Concomitant]

REACTIONS (3)
  - ENTERITIS INFECTIOUS [None]
  - GASTROENTERITIS [None]
  - HEADACHE [None]
